FAERS Safety Report 8448951-5 (Version None)
Quarter: 2012Q2

REPORT INFORMATION
  Report Type: 
  Country: None (occurrence: None)
  Receive Date: 20120619
  Receipt Date: 20120614
  Transmission Date: 20120825
  Serious: Yes (Hospitalization)
  Sender: FDA-Public Use
  Company Number: TW-GLAXOSMITHKLINE-B0809121A

PATIENT
  Age: 61 Year
  Sex: Female

DRUGS (3)
  1. AVANDIA [Suspect]
     Indication: PRODUCT USED FOR UNKNOWN INDICATION
     Dosage: 4MG FOUR TIMES PER DAY
     Route: 065
     Dates: start: 20030101
  2. METFORMIN HCL [Suspect]
     Indication: PRODUCT USED FOR UNKNOWN INDICATION
     Dosage: 500MG TWICE PER DAY
     Route: 065
     Dates: start: 20030101
  3. GLIMEPIRIDE [Suspect]
     Indication: PRODUCT USED FOR UNKNOWN INDICATION
     Dosage: 2MG THREE TIMES PER DAY
     Route: 065
     Dates: start: 20030101

REACTIONS (1)
  - HYPOGLYCAEMIC COMA [None]
